FAERS Safety Report 9049502 (Version 2)
Quarter: 2013Q1

REPORT INFORMATION
  Report Type: Report from Study
  Country: US (occurrence: US)
  Receive Date: 20130205
  Receipt Date: 20130213
  Transmission Date: 20140127
  Serious: Yes (Hospitalization)
  Sender: FDA-Public Use
  Company Number: US-ABBOTT-13P-163-1043255-00

PATIENT
  Age: 53 None
  Sex: Female
  Weight: 63.56 kg

DRUGS (9)
  1. HUMIRA [Suspect]
     Indication: CROHN^S DISEASE
     Dates: start: 20121026
  2. LISINOPRIL [Concomitant]
     Indication: HYPERTENSION
     Dosage: 10 MG DAILY
     Dates: end: 20130202
  3. LISINOPRIL [Concomitant]
     Dosage: 20 MG DAILY
     Dates: start: 20130202
  4. ALLEGRA [Concomitant]
     Indication: SEASONAL ALLERGY
     Dosage: 180 MG DAILY
  5. FLONASE [Concomitant]
     Indication: SEASONAL ALLERGY
     Dosage: 1 SPRAY IN EACH NOSTRIL DAILY
  6. PREDNISONE [Concomitant]
     Indication: CROHN^S DISEASE
     Dosage: 30 MG DAILY
  7. ALLEGRA [Concomitant]
     Indication: SEASONAL ALLERGY
  8. BLOOD PRESSURE MEDICATION [Concomitant]
     Indication: PRODUCT USED FOR UNKNOWN INDICATION
  9. IMURAN [Concomitant]
     Indication: CROHN^S DISEASE

REACTIONS (5)
  - Intestinal obstruction [Recovered/Resolved]
  - Vomiting [Recovered/Resolved]
  - Dehydration [Recovered/Resolved]
  - Nausea [Recovered/Resolved]
  - Clostridium difficile infection [Unknown]
